FAERS Safety Report 5522891-3 (Version None)
Quarter: 2007Q4

REPORT INFORMATION
  Report Type: 
  Country: None (occurrence: None)
  Receive Date: 20071116
  Receipt Date: 20071105
  Transmission Date: 20080405
  Serious: Yes (Hospitalization)
  Sender: FDA-Public Use
  Company Number: 239538K07USA

PATIENT
  Age: 44 Year
  Sex: Male
  Weight: 68.0396 kg

DRUGS (6)
  1. REBIF [Suspect]
     Indication: MULTIPLE SCLEROSIS
     Dosage: 44 MCG,  3 IN 1 WEEKS, SUBCUTANEOUS
     Route: 058
     Dates: start: 20070606
  2. ZONEGRAN [Concomitant]
  3. PROVIGIL [Concomitant]
  4. STEROIDS           (CORTICOSTEROIDS) [Concomitant]
  5. ALEVE [Concomitant]
  6. MOTRIN                  (IBPROFEN) [Concomitant]

REACTIONS (2)
  - CHOLELITHIASIS [None]
  - PROCEDURAL PAIN [None]
